FAERS Safety Report 8452792-2 (Version None)
Quarter: 2012Q2

REPORT INFORMATION
  Report Type: 
  Country: None (occurrence: None)
  Receive Date: 20120620
  Receipt Date: 20120426
  Transmission Date: 20120825
  Serious: No
  Sender: FDA-Public Use
  Company Number: US-VERTEX PHARMACEUTICALS INC.-AE-2012-006023

PATIENT
  Sex: Female
  Weight: 44.492 kg

DRUGS (6)
  1. COLAZOL [Concomitant]
     Indication: COLITIS ULCERATIVE
     Route: 048
     Dates: start: 20110801
  2. RIBAVIRIN [Concomitant]
     Indication: HEPATITIS C
     Route: 048
     Dates: start: 20120302, end: 20120327
  3. RIBAVIRIN [Concomitant]
     Route: 048
     Dates: start: 20120327
  4. INCIVEK [Suspect]
     Indication: HEPATITIS C
     Route: 048
     Dates: start: 20120406, end: 20120416
  5. PEGASYS [Concomitant]
     Indication: HEPATITIS C
     Route: 058
     Dates: start: 20120302
  6. CANAS SUPP [Concomitant]
     Indication: COLITIS ULCERATIVE

REACTIONS (7)
  - HAEMATOCRIT DECREASED [None]
  - DIARRHOEA [None]
  - FATIGUE [None]
  - PLATELET COUNT DECREASED [None]
  - HEADACHE [None]
  - NAUSEA [None]
  - WHITE BLOOD CELL COUNT DECREASED [None]
